FAERS Safety Report 7206685-9 (Version None)
Quarter: 2011Q1

REPORT INFORMATION
  Report Type: 
  Country: None (occurrence: None)
  Receive Date: 20110103
  Receipt Date: 20101223
  Transmission Date: 20110831
  Serious: No
  Sender: FDA-Public Use
  Company Number: US-PFIZER INC-2010178890

PATIENT
  Sex: Female
  Weight: 72.6 kg

DRUGS (2)
  1. PRISTIQ [Suspect]
     Indication: MENOPAUSE
  2. PRISTIQ [Suspect]
     Indication: DEPRESSION
     Dosage: 50 MG, 1X/DAY
     Route: 048
     Dates: start: 20090101

REACTIONS (1)
  - DEPRESSED MOOD [None]
